FAERS Safety Report 12689303 (Version 1)
Quarter: 2016Q3

REPORT INFORMATION
  Report Type: Spontaneous
  Country: US (occurrence: None)
  Receive Date: 20160825
  Receipt Date: 20160825
  Transmission Date: 20161109
  Serious: Yes (Hospitalization)
  Sender: FDA-Public Use
  Company Number: None

PATIENT
  Age: 80 Year
  Sex: Male
  Weight: 107.6 kg

DRUGS (1)
  1. FLUTAMIDE. [Suspect]
     Active Substance: FLUTAMIDE
     Dates: end: 20160824

REACTIONS (3)
  - Foot fracture [None]
  - Fall [None]
  - Tendon injury [None]

NARRATIVE: CASE EVENT DATE: 20160722
